FAERS Safety Report 24233653 (Version 1)
Quarter: 2024Q3

REPORT INFORMATION
  Report Type: Spontaneous
  Country: US (occurrence: US)
  Receive Date: 20240821
  Receipt Date: 20240821
  Transmission Date: 20241016
  Serious: Yes (Other)
  Sender: AMERICAN REGENT
  Company Number: US-AMERICAN REGENT INC-2024003192

PATIENT
  Age: 53 Year
  Sex: Female

DRUGS (6)
  1. TRANEXAMIC ACID [Suspect]
     Active Substance: TRANEXAMIC ACID
     Indication: Haemorrhage prophylaxis
     Dosage: TOTAL DOSE 365 MILLIGRAM (FIRST, 40 ML OF TUMESCENT WAS INJECTED INTO THE FIELD (10 ML TXA 1000 MG/M
  2. TRANEXAMIC ACID [Suspect]
     Active Substance: TRANEXAMIC ACID
     Indication: Prophylaxis
  3. LIDOCAINE HYDROCHLORIDE [Suspect]
     Active Substance: LIDOCAINE HYDROCHLORIDE
     Indication: Local anaesthesia
     Dosage: UNK
  4. SODIUM CHLORIDE [Concomitant]
     Active Substance: SODIUM CHLORIDE
     Indication: Local anaesthesia
     Dosage: 100 MILLILITER (40 ML OF TUMESCENT WAS INJECTED INTO THE FIELD (10 ML TXA 1000 MG/ML, 100 ML SALINE,
  5. EPINEPHRINE [Concomitant]
     Active Substance: EPINEPHRINE
     Indication: Local anaesthesia
     Dosage: 2 MILLILITER (40 ML OF TUMESCENT WAS INJECTED INTO THE FIELD (10 ML TXA 1000 MG/ML, 100 ML SALINE, 2
  6. CYANOCOBALAMIN [Concomitant]
     Active Substance: CYANOCOBALAMIN
     Indication: Local anaesthesia
     Dosage: 1 MILLILITER (40 ML OF TUMESCENT WAS INJECTED INTO THE FIELD (10 ML TXA 1000 MG/ML, 100 ML SALINE, 2

REACTIONS (6)
  - Ischaemia [Recovered/Resolved]
  - Blister [Recovered/Resolved]
  - Eschar [Recovered/Resolved]
  - Erythema [Not Recovered/Not Resolved]
  - Product use in unapproved indication [Recovered/Resolved]
  - Incorrect route of product administration [Recovered/Resolved]
